FAERS Safety Report 5149893-3 (Version None)
Quarter: 2006Q4

REPORT INFORMATION
  Report Type: 
  Country: None (occurrence: None)
  Receive Date: 20061113
  Receipt Date: 20060911
  Transmission Date: 20070319
  Serious: Yes (Death, Hospitalization)
  Sender: FDA-Public Use
  Company Number: BE-ELI_LILLY_AND_COMPANY-BE200609003045

PATIENT
  Age: 80 Year
  Sex: Male
  Weight: 63 kg

DRUGS (12)
  1. DULOXETINE HYDROCHLORIDE [Suspect]
     Indication: DEPRESSION
     Dosage: 60 MG, DAILY (1/D)
     Route: 048
     Dates: start: 20060621
  2. DULOXETINE HYDROCHLORIDE [Suspect]
     Dosage: 30 MG, UNK
     Route: 048
  3. TEMESTA                                 /NET/ [Concomitant]
     Indication: INSOMNIA
     Dates: start: 20060614
  4. ZOLADEX [Concomitant]
  5. OMEPRAZOLE [Concomitant]
  6. DUOVENT [Concomitant]
     Indication: CHRONIC OBSTRUCTIVE PULMONARY DISEASE
  7. SERETIDE EVOHALER [Concomitant]
     Indication: CHRONIC OBSTRUCTIVE PULMONARY DISEASE
  8. XANTHIUM [Concomitant]
     Indication: CHRONIC OBSTRUCTIVE PULMONARY DISEASE
  9. SPIRIVA [Concomitant]
     Indication: CHRONIC OBSTRUCTIVE PULMONARY DISEASE
  10. LYSOMUCIL [Concomitant]
  11. VERAPAMIL [Concomitant]
  12. TERAZOSIN HCL [Concomitant]

REACTIONS (2)
  - CHRONIC OBSTRUCTIVE PULMONARY DISEASE [None]
  - SUDDEN DEATH [None]
